FAERS Safety Report 20309807 (Version 1)
Quarter: 2022Q1

REPORT INFORMATION
  Report Type: Spontaneous
  Country: CN (occurrence: CN)
  Receive Date: 20220107
  Receipt Date: 20220107
  Transmission Date: 20220424
  Serious: Yes (Other)
  Sender: FDA-Public Use
  Company Number: CN-PFIZER INC-202101872218

PATIENT
  Age: 78 Year
  Sex: Male
  Weight: 60 kg

DRUGS (3)
  1. METHYLPREDNISOLONE SODIUM SUCCINATE [Suspect]
     Active Substance: METHYLPREDNISOLONE SODIUM SUCCINATE
     Indication: Muscle spasms
     Dosage: 40.000 MG, 1X/DAY
     Route: 041
     Dates: start: 20211201, end: 20211202
  2. METHYLPREDNISOLONE SODIUM SUCCINATE [Suspect]
     Active Substance: METHYLPREDNISOLONE SODIUM SUCCINATE
     Indication: Asthma
  3. SODIUM CHLORIDE [Concomitant]
     Active Substance: SODIUM CHLORIDE
     Indication: Vehicle solution use
     Dosage: 100.000 ML, 1X/DAY
     Route: 041
     Dates: start: 20211201, end: 20211202

REACTIONS (1)
  - Tremor [Recovered/Resolved]

NARRATIVE: CASE EVENT DATE: 20211202
